FAERS Safety Report 17841555 (Version 2)
Quarter: 2020Q2

REPORT INFORMATION
  Report Type: Not Available
  Country: US (occurrence: US)
  Receive Date: 20200529
  Receipt Date: 20200622
  Transmission Date: 20200714
  Serious: No
  Sender: FDA-Public Use
  Company Number: US-NEUROCRINE BIOSCIENCES INC.-2020NBI01597

PATIENT
  Age: 67 Year
  Sex: Female

DRUGS (3)
  1. INGREZZA [Suspect]
     Active Substance: VALBENAZINE
     Indication: TARDIVE DYSKINESIA
     Route: 048
     Dates: start: 202003
  2. FLUOXETINE [Concomitant]
     Active Substance: FLUOXETINE HYDROCHLORIDE
     Indication: DEPRESSION
  3. INGREZZA [Suspect]
     Active Substance: VALBENAZINE
     Dosage: PATIENT WAS TAKING 80 MG FIRST AND THEN 40 MG WAS ADDED (TOTAL 120 MG)
     Route: 048
     Dates: start: 20200324, end: 20200501

REACTIONS (4)
  - Therapeutic product effect incomplete [Unknown]
  - Anal incontinence [Recovered/Resolved]
  - Drooling [Recovered/Resolved]
  - Prescribed overdose [Unknown]

NARRATIVE: CASE EVENT DATE: 20200324
